FAERS Safety Report 19171223 (Version 2)
Quarter: 2021Q2

REPORT INFORMATION
  Report Type: Report from Study
  Country: US (occurrence: US)
  Receive Date: 20210423
  Receipt Date: 20210608
  Transmission Date: 20210717
  Serious: No
  Sender: FDA-Public Use
  Company Number: US-ACADIA PHARMACEUTICALS INC.-ACA-2021-PIM-001183

PATIENT
  Sex: Male

DRUGS (3)
  1. NUPLAZID [Suspect]
     Active Substance: PIMAVANSERIN TARTRATE
     Indication: HALLUCINATION
  2. NUPLAZID [Suspect]
     Active Substance: PIMAVANSERIN TARTRATE
     Indication: PSYCHOTIC DISORDER DUE TO A GENERAL MEDICAL CONDITION
  3. NUPLAZID [Suspect]
     Active Substance: PIMAVANSERIN TARTRATE
     Indication: PSYCHOTIC DISORDER
     Dosage: 34 MILLIGRAM, QD
     Route: 048
     Dates: start: 20201118

REACTIONS (3)
  - Peripheral swelling [Unknown]
  - Oedema peripheral [Unknown]
  - Gait disturbance [Unknown]
